APPROVED DRUG PRODUCT: CINACALCET HYDROCHLORIDE
Active Ingredient: CINACALCET HYDROCHLORIDE
Strength: EQ 60MG BASE
Dosage Form/Route: TABLET;ORAL
Application: A208368 | Product #002 | TE Code: AB
Applicant: DR REDDYS LABORATORIES LTD
Approved: Sep 18, 2020 | RLD: No | RS: No | Type: RX